FAERS Safety Report 16341757 (Version 1)
Quarter: 2019Q2

REPORT INFORMATION
  Report Type: Spontaneous
  Country: TR (occurrence: TR)
  Receive Date: 20190522
  Receipt Date: 20190522
  Transmission Date: 20190711
  Serious: Yes (Other)
  Sender: FDA-Public Use
  Company Number: TR-FRESENIUS KABI-FK201905738

PATIENT
  Age: 15 Year
  Sex: Male

DRUGS (3)
  1. BETAMETHASONE SODIUM PHOSPHATE [Suspect]
     Active Substance: BETAMETHASONE SODIUM PHOSPHATE
     Indication: NERVE BLOCK
     Dosage: 5,26 MG
     Route: 065
  2. LIDOCAINE (MANUFACTURER UNKNOWN) [Suspect]
     Active Substance: LIDOCAINE
     Indication: NERVE BLOCK
     Route: 065
  3. BETAMETHASONE DIPROPIONATE. [Suspect]
     Active Substance: BETAMETHASONE DIPROPIONATE
     Indication: NERVE BLOCK
     Dosage: 12,86 MG
     Route: 065

REACTIONS (2)
  - Soft tissue atrophy [Unknown]
  - Product use in unapproved indication [Unknown]
